FAERS Safety Report 4574955-9 (Version None)
Quarter: 2005Q1

REPORT INFORMATION
  Report Type: 
  Country: None (occurrence: None)
  Receive Date: 20050208
  Receipt Date: 20050127
  Transmission Date: 20050727
  Serious: Yes (Other)
  Sender: FDA-Public Use
  Company Number: FR-JNJFOC-20041204639

PATIENT
  Age: 70 Year
  Sex: Female

DRUGS (1)
  1. RISPERDAL [Suspect]
     Indication: DELUSION
     Route: 049

REACTIONS (3)
  - COGWHEEL RIGIDITY [None]
  - GENERAL PHYSICAL HEALTH DETERIORATION [None]
  - URINARY TRACT INFECTION [None]
